FAERS Safety Report 4947683-5 (Version None)
Quarter: 2006Q1

REPORT INFORMATION
  Report Type: 
  Country: None (occurrence: None)
  Receive Date: 20060310
  Receipt Date: 20060308
  Transmission Date: 20060701
  Serious: Yes (Life-Threatening)
  Sender: FDA-Public Use
  Company Number: 200610268BYL

PATIENT
  Age: 85 Year
  Sex: Male

DRUGS (3)
  1. CIPROFLOXACIN [Suspect]
  2. ISONIAZID [Concomitant]
  3. RIFAMPICIN [Concomitant]

REACTIONS (2)
  - CONVULSION [None]
  - MULTI-ORGAN FAILURE [None]
